FAERS Safety Report 4768838-9 (Version None)
Quarter: 2005Q3

REPORT INFORMATION
  Report Type: 
  Country: None (occurrence: None)
  Receive Date: 20050914
  Receipt Date: 20040329
  Transmission Date: 20060218
  Serious: Yes (Hospitalization, Disabling, Other)
  Sender: FDA-Public Use
  Company Number: US-MERCK-0403USA02524

PATIENT
  Age: 45 Year
  Sex: Female
  Weight: 67 kg

DRUGS (10)
  1. VIOXX [Suspect]
     Indication: BACK PAIN
     Route: 048
     Dates: start: 19990901, end: 20001001
  2. VIOXX [Suspect]
     Route: 048
     Dates: start: 20030721, end: 20030726
  3. VIOXX [Suspect]
     Route: 048
     Dates: start: 20040209
  4. VIOXX [Suspect]
     Route: 048
     Dates: start: 20030727
  5. VIOXX [Suspect]
     Indication: PAIN
     Route: 048
     Dates: start: 19990901, end: 20001001
  6. VIOXX [Suspect]
     Route: 048
     Dates: start: 20030721, end: 20030726
  7. VIOXX [Suspect]
     Route: 048
     Dates: start: 20040209
  8. VIOXX [Suspect]
     Route: 048
     Dates: start: 20030727
  9. DILANTIN [Concomitant]
     Indication: CONVULSION
     Route: 065
     Dates: start: 20000201, end: 20010201
  10. SOMA [Concomitant]
     Route: 065

REACTIONS (13)
  - ACQUIRED IMMUNODEFICIENCY SYNDROME [None]
  - AORTIC VALVE INCOMPETENCE [None]
  - ARTHRALGIA [None]
  - BURSITIS [None]
  - CARDIOVASCULAR DISORDER [None]
  - CEREBROVASCULAR ACCIDENT [None]
  - CONVULSION [None]
  - DEPRESSION [None]
  - HIV INFECTION [None]
  - HYPERTENSION [None]
  - KIDNEY INFECTION [None]
  - PAIN IN EXTREMITY [None]
  - VISUAL FIELD DEFECT [None]
